FAERS Safety Report 8286915-5 (Version None)
Quarter: 2012Q2

REPORT INFORMATION
  Report Type: 
  Country: None (occurrence: None)
  Receive Date: 20120416
  Receipt Date: 20120410
  Transmission Date: 20120825
  Serious: Yes (Death)
  Sender: FDA-Public Use
  Company Number: US-ASTELLAS-2012US003295

PATIENT
  Sex: Female
  Weight: 123 kg

DRUGS (3)
  1. TARCEVA [Suspect]
     Indication: NON-SMALL CELL LUNG CANCER
     Dosage: 150 MG, UID/QD
     Route: 048
     Dates: start: 20110202, end: 20120201
  2. FENTANYL-100 [Concomitant]
     Indication: PAIN
     Dosage: 50 UG, UNKNOWN/D
     Route: 062
     Dates: start: 20120119
  3. NEURONTIN [Concomitant]
     Indication: NEURALGIA
     Dosage: 100 MG, BID
     Route: 048

REACTIONS (1)
  - LUNG CANCER METASTATIC [None]
